FAERS Safety Report 9272738 (Version 3)
Quarter: 2013Q2

REPORT INFORMATION
  Report Type: Report from Study
  Country: CZ (occurrence: CZ)
  Receive Date: 20130506
  Receipt Date: 20130530
  Transmission Date: 20140414
  Serious: Yes (Hospitalization)
  Sender: FDA-Public Use
  Company Number: CZ-ASTRAZENECA-2013SE30244

PATIENT
  Age: 23736 Day
  Sex: Male

DRUGS (5)
  1. AZD6140 [Suspect]
     Indication: CORONARY ARTERY DISEASE
     Route: 048
     Dates: start: 20120312, end: 20130414
  2. ASA [Suspect]
     Route: 048
     Dates: end: 20130414
  3. ROSUCARD [Concomitant]
     Indication: DYSLIPIDAEMIA
     Route: 048
  4. RAMIL [Concomitant]
     Indication: HYPERTENSION
     Route: 048
  5. AGEN [Concomitant]
     Indication: HYPERTENSION
     Route: 048

REACTIONS (1)
  - Haemorrhagic erosive gastritis [Recovered/Resolved]
